FAERS Safety Report 15065155 (Version 1)
Quarter: 2018Q2

REPORT INFORMATION
  Report Type: Spontaneous
  Country: US (occurrence: US)
  Receive Date: 20180626
  Receipt Date: 20180626
  Transmission Date: 20180711
  Serious: No
  Sender: FDA-Public Use
  Company Number: US-ASTRAZENECA-2018SE71732

PATIENT
  Sex: Male
  Weight: 127.9 kg

DRUGS (7)
  1. BYDUREON BCISE [Suspect]
     Active Substance: EXENATIDE
     Indication: TYPE 2 DIABETES MELLITUS
     Route: 058
     Dates: start: 2018
  2. METFORMIN [Concomitant]
     Active Substance: METFORMIN HYDROCHLORIDE
     Route: 048
  3. METOPROLOL. [Concomitant]
     Active Substance: METOPROLOL
     Indication: SLEEP DISORDER
     Route: 048
  4. PIOGLITAZONE. [Concomitant]
     Active Substance: PIOGLITAZONE
     Indication: BLOOD PRESSURE ABNORMAL
     Route: 048
  5. AMLODIPINE [Concomitant]
     Active Substance: AMLODIPINE BESYLATE
     Route: 048
  6. HYDROCHLOROTHIAZIDE. [Concomitant]
     Active Substance: HYDROCHLOROTHIAZIDE
     Route: 048
     Dates: start: 2017
  7. SIMVASTATIN. [Concomitant]
     Active Substance: SIMVASTATIN
     Route: 048

REACTIONS (3)
  - Injury associated with device [Unknown]
  - Wrong technique in product usage process [Unknown]
  - Device issue [Unknown]
